FAERS Safety Report 6380446-5 (Version None)
Quarter: 2009Q3

REPORT INFORMATION
  Report Type: 
  Country: None (occurrence: None)
  Receive Date: 20090929
  Receipt Date: 20090924
  Transmission Date: 20100115
  Serious: Yes (Hospitalization)
  Sender: FDA-Public Use
  Company Number: SE-BRISTOL-MYERS SQUIBB COMPANY-14773139

PATIENT
  Age: 61 Year
  Sex: Male

DRUGS (1)
  1. APROVEL FILM-COATED TABS 300 MG [Suspect]
     Dates: start: 20020501

REACTIONS (2)
  - POLYMYALGIA RHEUMATICA [None]
  - SICCA SYNDROME [None]
